FAERS Safety Report 9112756 (Version 1)
Quarter: 2013Q1

REPORT INFORMATION
  Report Type: Spontaneous
  Country: US (occurrence: US)
  Receive Date: 20130211
  Receipt Date: 20130211
  Transmission Date: 20140127
  Serious: Yes (Other)
  Sender: FDA-Public Use
  Company Number: US-PFIZER INC-2013052542

PATIENT
  Sex: Male

DRUGS (3)
  1. NEURONTIN [Suspect]
     Indication: PAIN
     Dosage: 3400 MG, 1X/DAY
  2. LYRICA [Suspect]
     Indication: PAIN
     Dosage: 100 MG, 1X/DAY
     Route: 048
  3. ELAVIL [Suspect]
     Indication: PAIN
     Dosage: UNK

REACTIONS (3)
  - Monoplegia [Unknown]
  - Drug ineffective [Unknown]
  - Pain in extremity [Unknown]
